FAERS Safety Report 15589033 (Version 1)
Quarter: 2018Q4

REPORT INFORMATION
  Report Type: Spontaneous
  Country: PH (occurrence: PH)
  Receive Date: 20181106
  Receipt Date: 20181106
  Transmission Date: 20190205
  Serious: Yes (Life-Threatening, Other)
  Sender: FDA-Public Use
  Company Number: PH-MACLEODS PHARMACEUTICALS US LTD-MAC2018018462

PATIENT

DRUGS (10)
  1. LINEZOLID. [Suspect]
     Active Substance: LINEZOLID
     Indication: CARDIAC PSEUDOANEURYSM
     Dosage: UNK
     Route: 065
  2. LINEZOLID. [Suspect]
     Active Substance: LINEZOLID
     Indication: PNEUMONIA
  3. VANCOMYCIN [Concomitant]
     Active Substance: VANCOMYCIN
     Indication: CARDIAC PSEUDOANEURYSM
  4. TRAMADOL HYDROCHLORIDE. [Suspect]
     Active Substance: TRAMADOL HYDROCHLORIDE
     Indication: PNEUMONIA
  5. PIPERACILLIN/TAZOBACTAM [Concomitant]
     Active Substance: PIPERACILLIN SODIUM\TAZOBACTAM SODIUM
     Indication: CARDIAC PSEUDOANEURYSM
     Dosage: UNK
     Route: 065
  6. VANCOMYCIN [Concomitant]
     Active Substance: VANCOMYCIN
     Indication: PNEUMONIA
     Dosage: UNK
     Route: 065
  7. ISONIAZID. [Suspect]
     Active Substance: ISONIAZID
     Indication: CARDIAC PSEUDOANEURYSM
     Dosage: UNK
     Route: 065
  8. TRAMADOL HYDROCHLORIDE. [Suspect]
     Active Substance: TRAMADOL HYDROCHLORIDE
     Indication: CARDIAC PSEUDOANEURYSM
     Dosage: UNK
     Route: 065
  9. ISONIAZID. [Suspect]
     Active Substance: ISONIAZID
     Indication: PNEUMONIA
  10. PIPERACILLIN/TAZOBACTAM [Concomitant]
     Active Substance: PIPERACILLIN SODIUM\TAZOBACTAM SODIUM
     Indication: PNEUMONIA

REACTIONS (3)
  - Serotonin syndrome [Recovering/Resolving]
  - Chest pain [Recovering/Resolving]
  - Rhabdomyolysis [Recovering/Resolving]
